FAERS Safety Report 15553324 (Version 1)
Quarter: 2018Q4

REPORT INFORMATION
  Report Type: Spontaneous
  Country: US (occurrence: US)
  Receive Date: 20181026
  Receipt Date: 20181026
  Transmission Date: 20190205
  Serious: No
  Sender: FDA-Public Use
  Company Number: US-AMGEN-USACT2018149652

PATIENT
  Sex: Male

DRUGS (2)
  1. PANITUMUMAB [Suspect]
     Active Substance: PANITUMUMAB
     Indication: RECTAL CANCER
     Dosage: UNK
     Route: 050
     Dates: start: 2013
  2. CABOZANTINIB [Suspect]
     Active Substance: CABOZANTINIB
     Indication: RECTAL CANCER
     Dosage: UNK
     Route: 065

REACTIONS (2)
  - Dehiscence [Unknown]
  - Abscess [Unknown]
